FAERS Safety Report 4882776-2 (Version None)
Quarter: 2006Q1

REPORT INFORMATION
  Report Type: 
  Country: None (occurrence: None)
  Receive Date: 20060117
  Receipt Date: 20050801
  Transmission Date: 20060701
  Serious: Yes (Hospitalization, Disabling)
  Sender: FDA-Public Use
  Company Number: US-MERCK-0508USA00926

PATIENT
  Age: 52 Year
  Sex: Female
  Weight: 57 kg

DRUGS (15)
  1. VIOXX [Suspect]
     Indication: ARTHRITIS
     Route: 048
     Dates: start: 20000701, end: 20010701
  2. ASPIRIN [Concomitant]
     Route: 065
  3. ZOLOFT [Concomitant]
     Route: 065
  4. ZYRTEC [Concomitant]
     Route: 065
  5. LASIX [Concomitant]
     Route: 065
  6. COZAAR [Concomitant]
     Route: 065
  7. ATENOLOL [Concomitant]
     Route: 065
  8. ATIVAN [Concomitant]
     Route: 065
  9. PREMARIN [Concomitant]
     Route: 065
  10. [COMPOSITION UNSPECIFIED] [Concomitant]
     Route: 065
  11. LISINOPRIL [Concomitant]
     Route: 065
  12. HYDROCHLOROTHIAZIDE [Concomitant]
     Route: 065
  13. DIOVAN [Concomitant]
     Route: 065
  14. COUMADIN [Concomitant]
     Route: 065
  15. METOPROLOL [Concomitant]
     Route: 065

REACTIONS (4)
  - ARTHRITIS [None]
  - CEREBROVASCULAR ACCIDENT [None]
  - HYPERTENSION [None]
  - RENAL ARTERY STENOSIS [None]
